FAERS Safety Report 6868922-X (Version None)
Quarter: 2010Q3

REPORT INFORMATION
  Report Type: 
  Country: None (occurrence: None)
  Receive Date: 20100722
  Receipt Date: 20080801
  Transmission Date: 20110219
  Serious: No
  Sender: FDA-Public Use
  Company Number: US-PFIZER INC-2008049746

PATIENT
  Sex: Male
  Weight: 142.43 kg

DRUGS (4)
  1. CHANTIX [Suspect]
     Indication: SMOKING CESSATION THERAPY
     Route: 048
     Dates: start: 20080603, end: 20080608
  2. ADDERALL 10 [Concomitant]
     Indication: ATTENTION DEFICIT/HYPERACTIVITY DISORDER
     Route: 048
  3. OBETROL [Concomitant]
  4. CLARITIN [Concomitant]
     Route: 048

REACTIONS (8)
  - AGGRESSION [None]
  - ANGER [None]
  - APATHY [None]
  - DEPRESSION [None]
  - EMOTIONAL DISORDER [None]
  - FEELING ABNORMAL [None]
  - NIGHTMARE [None]
  - PERSONALITY CHANGE [None]
